FAERS Safety Report 6396087-X (Version None)
Quarter: 2009Q4

REPORT INFORMATION
  Report Type: 
  Country: None (occurrence: None)
  Receive Date: 20091009
  Receipt Date: 20091007
  Transmission Date: 20100525
  Serious: Yes (Other)
  Sender: FDA-Public Use
  Company Number: US-GENENTECH-291608

PATIENT
  Sex: Female
  Weight: 11.338 kg

DRUGS (2)
  1. XOLAIR [Suspect]
     Indication: ASTHMA
     Dosage: 375 MG, Q2W
     Route: 058
     Dates: start: 20090929
  2. XOLAIR [Suspect]
     Indication: ATOPY

REACTIONS (2)
  - PRODUCTIVE COUGH [None]
  - WHEEZING [None]
